APPROVED DRUG PRODUCT: ACTIGALL
Active Ingredient: URSODIOL
Strength: 150MG **Federal Register determination that product was not discontinued or withdrawn for safety or effectiveness reasons**
Dosage Form/Route: CAPSULE;ORAL
Application: N019594 | Product #001
Applicant: TEVA BRANDED PHARMACEUTICAL PRODUCTS R AND D INC
Approved: Dec 31, 1987 | RLD: No | RS: No | Type: DISCN